FAERS Safety Report 5236708-8 (Version None)
Quarter: 2007Q1

REPORT INFORMATION
  Report Type: 
  Country: None (occurrence: None)
  Receive Date: 20070209
  Receipt Date: 20070131
  Transmission Date: 20070707
  Serious: Yes (Death, Other)
  Sender: FDA-Public Use
  Company Number: 167-C5013-06060521

PATIENT
  Age: 61 Year
  Sex: Male

DRUGS (4)
  1. CC-5013 (LENALIDOMIDE) (CAPSULES) [Suspect]
     Indication: MULTIPLE MYELOMA
     Dosage: 25 MG, ORAL
     Route: 048
     Dates: start: 20051207, end: 20051214
  2. DEXAMETHASONE TAB [Suspect]
     Indication: MULTIPLE MYELOMA
  3. ACETAMINOPHEN [Concomitant]
  4. FLOXACILLIN SODIUM [Concomitant]

REACTIONS (2)
  - DISEASE PROGRESSION [None]
  - HEPATOTOXICITY [None]
